FAERS Safety Report 17546201 (Version 1)
Quarter: 2020Q1

REPORT INFORMATION
  Report Type: Spontaneous
  Country: US (occurrence: US)
  Receive Date: 20200316
  Receipt Date: 20200316
  Transmission Date: 20200409
  Serious: No
  Sender: FDA-Public Use
  Company Number: None

PATIENT
  Age: 51 Year
  Sex: Female
  Weight: 58.95 kg

DRUGS (6)
  1. SYNTHROID [Concomitant]
     Active Substance: LEVOTHYROXINE SODIUM
  2. ACYCLOVIR. [Concomitant]
     Active Substance: ACYCLOVIR
  3. MAGNESIUM [Concomitant]
     Active Substance: MAGNESIUM
  4. EMGALITY [Suspect]
     Active Substance: GALCANEZUMAB-GNLM
     Indication: MIGRAINE PROPHYLAXIS
     Dosage: ?          QUANTITY:1 INJECTION(S);OTHER FREQUENCY:ONCE MONTHLY;?
     Route: 030
     Dates: start: 20190918
  5. B-2 [Concomitant]
  6. CREATINE [Concomitant]
     Active Substance: CREATINE

REACTIONS (4)
  - Weight increased [None]
  - Abdominal distension [None]
  - Pruritus [None]
  - Breast tenderness [None]

NARRATIVE: CASE EVENT DATE: 20191113
